FAERS Safety Report 6567985-9 (Version None)
Quarter: 2010Q1

REPORT INFORMATION
  Report Type: 
  Country: None (occurrence: None)
  Receive Date: 20100203
  Receipt Date: 20100129
  Transmission Date: 20100710
  Serious: Yes (Death, Hospitalization)
  Sender: FDA-Public Use
  Company Number: DE-BRISTOL-MYERS SQUIBB COMPANY-14927875

PATIENT
  Age: 55 Year
  Sex: Male
  Weight: 93 kg

DRUGS (6)
  1. ABILIFY [Suspect]
     Indication: SCHIZOAFFECTIVE DISORDER
     Dosage: APPROXIMATELY 20MG DOSE INCREASED TO 20MG FROM 12AUG09
     Route: 048
     Dates: start: 20050601
  2. NEUROLEPTIC AGENT [Suspect]
  3. CIPRALEX [Suspect]
     Indication: SCHIZOAFFECTIVE DISORDER
     Route: 048
  4. CIPRALEX [Suspect]
     Indication: APATHY
     Route: 048
  5. SEROQUEL [Suspect]
     Indication: CATATONIA
     Route: 048
     Dates: start: 20090828, end: 20090902
  6. TAVOR [Suspect]
     Indication: CATATONIA
     Route: 048
     Dates: start: 20090828

REACTIONS (4)
  - CARDIO-RESPIRATORY ARREST [None]
  - HYPERHIDROSIS [None]
  - RESTLESSNESS [None]
  - SCHIZOAFFECTIVE DISORDER [None]
